FAERS Safety Report 14585965 (Version 2)
Quarter: 2018Q1

REPORT INFORMATION
  Report Type: Other
  Country: IT (occurrence: IT)
  Receive Date: 20180301
  Receipt Date: 20180316
  Transmission Date: 20180509
  Serious: Yes (Hospitalization, Other)
  Sender: FDA-Public Use
  Company Number: IT-MERCK KGAA-2042798

PATIENT
  Age: 57 Year
  Sex: Female

DRUGS (8)
  1. AMOXICILLIN/CLAVULANIC ACID(SPEKTRAMOX) [Suspect]
     Active Substance: AMOXICILLIN\CLAVULANATE POTASSIUM
     Route: 065
  2. LOPERAMIDE [Suspect]
     Active Substance: LOPERAMIDE
     Route: 065
  3. NOVOTHYROX [Suspect]
     Active Substance: LEVOTHYROXINE SODIUM
     Indication: PRODUCT USED FOR UNKNOWN INDICATION
     Route: 065
  4. RIFAXIMIN. [Suspect]
     Active Substance: RIFAXIMIN
     Route: 048
  5. NIMESULIDE [Suspect]
     Active Substance: NIMESULIDE
     Route: 065
  6. LANSOPRAZOLE. [Suspect]
     Active Substance: LANSOPRAZOLE
     Route: 065
  7. ESTRADIOL. [Suspect]
     Active Substance: ESTRADIOL
     Route: 065
  8. PAROXETINE. [Suspect]
     Active Substance: PAROXETINE
     Route: 065

REACTIONS (1)
  - Hepatocellular injury [Unknown]
